FAERS Safety Report 9314615 (Version 3)
Quarter: 2013Q3

REPORT INFORMATION
  Report Type: Spontaneous
  Country: US (occurrence: US)
  Receive Date: 20130529
  Receipt Date: 20130701
  Transmission Date: 20140515
  Serious: Yes (Life-Threatening, Hospitalization, Disabling, Other)
  Sender: FDA-Public Use
  Company Number: US-009507513-1305USA015067

PATIENT
  Age: 45 Year
  Sex: Male
  Weight: 59.86 kg

DRUGS (8)
  1. VICTRELIS [Suspect]
     Indication: HEPATITIS C
     Dosage: FOUR 200MG CAPSULES, THREE TIMES A DAY
     Route: 048
     Dates: start: 201301, end: 20130524
  2. RIBASPHERE [Suspect]
  3. PEGASYS [Suspect]
  4. ISENTRESS [Concomitant]
     Route: 048
  5. TRUVADA [Concomitant]
  6. XANAX [Concomitant]
  7. TYLENOL [Concomitant]
     Dosage: UNK, PRN
  8. ONDANSETRON [Concomitant]

REACTIONS (5)
  - Intestinal cyst [Unknown]
  - Gastrointestinal motility disorder [Unknown]
  - Cyst removal [Unknown]
  - Weight decreased [Unknown]
  - Depression [Not Recovered/Not Resolved]
